FAERS Safety Report 5728596-8 (Version None)
Quarter: 2008Q2

REPORT INFORMATION
  Report Type: 
  Country: None (occurrence: None)
  Receive Date: 20080502
  Receipt Date: 20080502
  Transmission Date: 20081010
  Serious: No
  Sender: FDA-Public Use
  Company Number: None

PATIENT
  Age: 50 Year
  Sex: Female
  Weight: 95.2554 kg

DRUGS (2)
  1. DIGITEK 0.25 AMIDE -BERTEK- [Suspect]
     Indication: MITRAL VALVE PROLAPSE
     Dosage: 1 TABLET DAILY PO
     Route: 048
     Dates: start: 19980101, end: 20080430
  2. DIGITEK 0.25 AMIDE -BERTEK- [Suspect]
     Indication: SUPRAVENTRICULAR TACHYCARDIA
     Dosage: 1 TABLET DAILY PO
     Route: 048
     Dates: start: 19980101, end: 20080430

REACTIONS (8)
  - BRADYCARDIA [None]
  - DIZZINESS [None]
  - HYPOTENSION [None]
  - IMPAIRED DRIVING ABILITY [None]
  - NAUSEA [None]
  - PHARMACEUTICAL PRODUCT COMPLAINT [None]
  - VISUAL DISTURBANCE [None]
  - VOMITING [None]
